FAERS Safety Report 7067940-9 (Version None)
Quarter: 2010Q4

REPORT INFORMATION
  Report Type: 
  Country: None (occurrence: None)
  Receive Date: 20101028
  Receipt Date: 20091110
  Transmission Date: 20110411
  Serious: Yes (Hospitalization)
  Sender: FDA-Public Use
  Company Number: US-MYLANLABS-2009S1019630

PATIENT
  Age: 62 Year
  Sex: Male
  Weight: 95.45 kg

DRUGS (4)
  1. ENOXAPARIN SODIUM [Suspect]
     Indication: PULMONARY EMBOLISM
     Dates: start: 20090403, end: 20090401
  2. WARFARIN SODIUM [Suspect]
     Indication: PULMONARY EMBOLISM
     Route: 048
     Dates: start: 20090403
  3. NAPROXEN [Concomitant]
     Dates: end: 20090301
  4. FONDAPARINUX SODIUM [Concomitant]
     Dates: start: 20090301, end: 20090101

REACTIONS (5)
  - ASTHENIA [None]
  - HAEMOGLOBIN DECREASED [None]
  - HAEMORRHAGE [None]
  - HYPOAESTHESIA [None]
  - MUSCLE INJURY [None]
